FAERS Safety Report 8164517-9 (Version None)
Quarter: 2012Q1

REPORT INFORMATION
  Report Type: 
  Country: None (occurrence: None)
  Receive Date: 20120224
  Receipt Date: 20120217
  Transmission Date: 20120608
  Serious: Yes (Other)
  Sender: FDA-Public Use
  Company Number: JP-ASTRAZENECA-2012SE08677

PATIENT
  Age: 81 Year
  Sex: Male

DRUGS (10)
  1. CASODEX [Suspect]
     Indication: PROSTATE CANCER
     Route: 048
     Dates: start: 20090101, end: 20120118
  2. ETOPOSIDE [Concomitant]
     Dosage: DOSE UNKNOWN
     Route: 065
     Dates: start: 20120118
  3. GRAN [Concomitant]
     Dosage: DOSE UNKNOWN
     Route: 065
  4. SINGULAIR [Concomitant]
     Dosage: DOSE UNKNOWN
     Route: 065
  5. EVIPROSTAT [Concomitant]
     Dosage: DOSE UNKNOWN
     Route: 065
  6. ZOLADEX [Suspect]
     Indication: PROSTATE CANCER
     Route: 058
     Dates: start: 20090101, end: 20120217
  7. CASODEX [Suspect]
     Route: 048
     Dates: start: 20120125
  8. CARBOPLATIN [Concomitant]
     Dosage: DOSE UNKNOWN
     Route: 065
  9. WARFARIN SODIUM [Concomitant]
     Dosage: DOSE UNKNOWN
     Route: 065
  10. AZELASTINE HCL [Concomitant]
     Dosage: DOSE UNKNOWN
     Route: 065

REACTIONS (1)
  - ATRIAL FIBRILLATION [None]
